FAERS Safety Report 24246404 (Version 1)
Quarter: 2024Q3

REPORT INFORMATION
  Report Type: Spontaneous
  Country: US (occurrence: US)
  Receive Date: 20240825
  Receipt Date: 20240825
  Transmission Date: 20241017
  Serious: No
  Sender: JOHNSON AND JOHNSON
  Company Number: US-JNJFOC-20240847020

PATIENT
  Sex: Male

DRUGS (2)
  1. XARELTO [Suspect]
     Active Substance: RIVAROXABAN
     Indication: Deep vein thrombosis
     Route: 048
  2. XARELTO [Suspect]
     Active Substance: RIVAROXABAN
     Dosage: 5 YEARS OR MORE
     Route: 048

REACTIONS (2)
  - Haematoma [Unknown]
  - Wrong technique in product usage process [Unknown]
